FAERS Safety Report 8360039 (Version 3)
Quarter: 2013Q1

REPORT INFORMATION
  Report Type: Spontaneous
  Country: IL (occurrence: None)
  Receive Date: 20120117
  Receipt Date: 20121106
  Transmission Date: 20140127
  Serious: Yes (Hospitalization)
  Sender: FDA-Public Use
  Company Number: 2012-0013

PATIENT
  Sex: Male

DRUGS (2)
  1. INCRELEX [Suspect]
  2. SYMBICORT [Suspect]

REACTIONS (2)
  - BLOOD POTASSIUM DECREASED [None]
  - CHEST PAIN [None]
